FAERS Safety Report 21439850 (Version 1)
Quarter: 2022Q4

REPORT INFORMATION
  Report Type: Spontaneous
  Country: US (occurrence: None)
  Receive Date: 20221008
  Receipt Date: 20221008
  Transmission Date: 20230112
  Serious: Yes (Disabling)
  Sender: FDA-Public Use
  Company Number: None

PATIENT
  Sex: 0
  Weight: 90.9 kg

DRUGS (8)
  1. BISOPROLOL FUMARATE [Suspect]
     Active Substance: BISOPROLOL FUMARATE
     Indication: Ventricular tachycardia
     Route: 048
     Dates: start: 20220912, end: 20220925
  2. Lansoprasol [Concomitant]
  3. ZYRTEC [Concomitant]
     Active Substance: CETIRIZINE HYDROCHLORIDE
  4. OLMESARTAN [Concomitant]
     Active Substance: OLMESARTAN
  5. ZETIA [Concomitant]
     Active Substance: EZETIMIBE
  6. MULTI-VITAMIN [Concomitant]
     Active Substance: .ALPHA.-TOCOPHEROL ACETATE, DL-\ASCORBIC ACID\CYANOCOBALAMIN\FLUORIDE ION\FOLIC ACID\NIACIN\PYRIDOXI
  7. VITAMIN D3 [Concomitant]
     Active Substance: CHOLECALCIFEROL
  8. Tuneric [Concomitant]

REACTIONS (3)
  - Arrhythmia [None]
  - Chest pain [None]
  - Product substitution issue [None]
